FAERS Safety Report 5592595-X (Version None)
Quarter: 2008Q1

REPORT INFORMATION
  Report Type: 
  Country: None (occurrence: None)
  Receive Date: 20080114
  Receipt Date: 20080102
  Transmission Date: 20080703
  Serious: Yes (Hospitalization)
  Sender: FDA-Public Use
  Company Number: 231033J07USA

PATIENT
  Age: 32 Year
  Sex: Male

DRUGS (2)
  1. REBIF [Suspect]
     Indication: MULTIPLE SCLEROSIS
     Dosage: 44 MCG, 3 IN 1 WEEKS, SUBCUTANEOUS
     Route: 058
     Dates: start: 20070828
  2. BACLOFEN [Concomitant]

REACTIONS (2)
  - MECHANICAL COMPLICATION OF IMPLANT [None]
  - URINARY TRACT INFECTION [None]
